FAERS Safety Report 8381101-2 (Version None)
Quarter: 2012Q2

REPORT INFORMATION
  Report Type: 
  Country: None (occurrence: None)
  Receive Date: 20120523
  Receipt Date: 20120518
  Transmission Date: 20120825
  Serious: No
  Sender: FDA-Public Use
  Company Number: US-PFIZER INC-2012122450

PATIENT
  Age: 40 Year
  Sex: Female

DRUGS (1)
  1. EPIPEN [Suspect]
     Dosage: UNK

REACTIONS (3)
  - INJECTION SITE PAIN [None]
  - ACCIDENTAL EXPOSURE [None]
  - INJECTION SITE PALLOR [None]
